FAERS Safety Report 14477432 (Version 1)
Quarter: 2018Q1

REPORT INFORMATION
  Report Type: Report from Study
  Country: US (occurrence: US)
  Receive Date: 20180201
  Receipt Date: 20180201
  Transmission Date: 20180509
  Serious: No
  Sender: FDA-Public Use
  Company Number: US-EXELIXIS-CABO-17011294

PATIENT
  Age: 66 Year
  Sex: Female

DRUGS (10)
  1. ROPINIROLE. [Concomitant]
     Active Substance: ROPINIROLE
  2. ATORVASTATIN [Concomitant]
     Active Substance: ATORVASTATIN
  3. ONDANSETRON [Concomitant]
     Active Substance: ONDANSETRON
  4. AMBIEN [Concomitant]
     Active Substance: ZOLPIDEM TARTRATE
  5. AMIODARONE [Concomitant]
     Active Substance: AMIODARONE
  6. CABOMETYX [Suspect]
     Active Substance: CABOZANTINIB S-MALATE
     Indication: RENAL CANCER
     Dosage: 60 MG, QD
     Route: 048
     Dates: start: 20171020, end: 20171110
  7. GABAPENTIN. [Concomitant]
     Active Substance: GABAPENTIN
  8. TRAMADOL. [Concomitant]
     Active Substance: TRAMADOL
  9. SERTRALINE [Concomitant]
     Active Substance: SERTRALINE HYDROCHLORIDE
  10. PRADAXA [Concomitant]
     Active Substance: DABIGATRAN ETEXILATE MESYLATE

REACTIONS (3)
  - Blister [Unknown]
  - Dermatitis contact [Unknown]
  - Pruritus [Unknown]

NARRATIVE: CASE EVENT DATE: 20171110
